FAERS Safety Report 9415402 (Version 1)
Quarter: 2013Q3

REPORT INFORMATION
  Report Type: Spontaneous
  Country: US (occurrence: US)
  Receive Date: 20130723
  Receipt Date: 20130723
  Transmission Date: 20140515
  Serious: No
  Sender: FDA-Public Use
  Company Number: US-PFIZER INC-2013210615

PATIENT
  Age: 85 Year
  Sex: Male
  Weight: 72.56 kg

DRUGS (1)
  1. TOVIAZ [Suspect]
     Indication: HYPERTONIC BLADDER
     Dosage: UNK, DAILY
     Dates: start: 2012

REACTIONS (1)
  - Nocturia [Unknown]
